FAERS Safety Report 4809210-2 (Version None)
Quarter: 2005Q4

REPORT INFORMATION
  Report Type: 
  Country: None (occurrence: None)
  Receive Date: 20051021
  Receipt Date: 20051004
  Transmission Date: 20060501
  Serious: Yes (Other)
  Sender: FDA-Public Use
  Company Number: PAR_0371_2005

PATIENT
  Age: 14 Year
  Weight: 75 kg

DRUGS (1)
  1. IBUPROFEN [Suspect]
     Indication: HEADACHE
     Dosage: 600 MG TID PO
     Route: 048

REACTIONS (2)
  - GASTRITIS [None]
  - HAEMATEMESIS [None]
